FAERS Safety Report 8084400 (Version 3)
Quarter: 2016Q1

REPORT INFORMATION
  Report Type: Report from Study
  Country: DE (occurrence: DE)
  Receive Date: 20110810
  Receipt Date: 20160211
  Transmission Date: 20160526
  Serious: Yes (Hospitalization)
  Sender: FDA-Public Use
  Company Number: DE-ROCHE-795503

PATIENT
  Age: 73 Year
  Sex: Female
  Weight: 78.8 kg

DRUGS (6)
  1. METHOTREXATE [Concomitant]
     Active Substance: METHOTREXATE
     Indication: RHEUMATOID ARTHRITIS
     Dosage: LAST ADMINISTRATION PRIOR TO THE EVENT WAS ON 12 JUL 2011
     Route: 048
     Dates: start: 1984, end: 20110712
  2. PREDNISOLON [Concomitant]
     Active Substance: PREDNISOLONE
     Indication: RHEUMATOID ARTHRITIS
     Dosage: LAST ADMINISTRATION PRIOR TO THE EVENT WAS ON 14 JUL 2011
     Route: 065
     Dates: start: 1984, end: 20110714
  3. ASPIRIN. [Concomitant]
     Active Substance: ASPIRIN
     Indication: THROMBOSIS PROPHYLAXIS
     Dosage: LAST ADMINISTRATION PRIOR TO THE EVENT WAS ON 14 JUL 2011
     Route: 048
     Dates: start: 200907, end: 20110714
  4. TOCILIZUMAB [Suspect]
     Active Substance: TOCILIZUMAB
     Indication: RHEUMATOID ARTHRITIS
     Route: 042
     Dates: start: 20110406, end: 20110714
  5. VERAPAMIL [Concomitant]
     Active Substance: VERAPAMIL HYDROCHLORIDE
     Indication: HYPERTENSION
     Dosage: LAST ADMINISTRATION PRIOR TO THE EVENT WAS ON 14 JUL 2011
     Route: 048
     Dates: start: 201101, end: 20110714
  6. FOLIC ACID. [Concomitant]
     Active Substance: FOLIC ACID
     Indication: RHEUMATOID ARTHRITIS
     Dosage: LAST ADMINISTRATION PRIOR TO THE EVENT WAS ON 13 JUL 2011
     Route: 048
     Dates: start: 1984, end: 20110713

REACTIONS (1)
  - Vomiting [Recovered/Resolved]

NARRATIVE: CASE EVENT DATE: 20110715
